FAERS Safety Report 18288886 (Version 3)
Quarter: 2020Q3

REPORT INFORMATION
  Report Type: Spontaneous
  Country: CZ (occurrence: CZ)
  Receive Date: 20200921
  Receipt Date: 20200925
  Transmission Date: 20201103
  Serious: Yes (Hospitalization, Other)
  Sender: FDA-Public Use
  Company Number: CZ-PFIZER INC-2020360954

PATIENT
  Age: 56 Year
  Sex: Female

DRUGS (3)
  1. NICOTINE. [Suspect]
     Active Substance: NICOTINE
     Indication: SUICIDAL IDEATION
     Dosage: 20 ML (ELIQUID)
     Route: 042
  2. BROMAZEPAM [Suspect]
     Active Substance: BROMAZEPAM
     Indication: SUICIDAL IDEATION
     Dosage: UNK (UNKNOWN AMOUNT)
  3. ALPRAZOLAM. [Suspect]
     Active Substance: ALPRAZOLAM
     Indication: SUICIDAL IDEATION
     Dosage: UNK (UNKNOWN AMOUNT)

REACTIONS (3)
  - Coma [Recovering/Resolving]
  - Loss of consciousness [Recovering/Resolving]
  - Suicide attempt [Unknown]
